FAERS Safety Report 15401360 (Version 1)
Quarter: 2018Q3

REPORT INFORMATION
  Report Type: Spontaneous
  Country: US (occurrence: US)
  Receive Date: 20180919
  Receipt Date: 20180919
  Transmission Date: 20181010
  Serious: No
  Sender: FDA-Public Use
  Company Number: US-SA-2018SA260234

PATIENT
  Sex: Female

DRUGS (1)
  1. TUBERSOL [Suspect]
     Active Substance: TUBERCULIN PURIFIED PROTEIN DERIVATIVE
     Indication: IMMUNISATION

REACTIONS (6)
  - Pain [Recovered/Resolved]
  - Hypoaesthesia oral [Recovered/Resolved]
  - Vaccination site reaction [Unknown]
  - Inflammation [Unknown]
  - Erythema [Recovered/Resolved]
  - Paraesthesia oral [Recovered/Resolved]
